FAERS Safety Report 6060134-5 (Version None)
Quarter: 2009Q1

REPORT INFORMATION
  Report Type: 
  Country: None (occurrence: None)
  Receive Date: 20090128
  Receipt Date: 20090114
  Transmission Date: 20090719
  Serious: Yes (Other)
  Sender: FDA-Public Use
  Company Number: IPS_01438_2009

PATIENT
  Sex: Female

DRUGS (1)
  1. APO-GO (APO-GO - APOMORPHINE HYDROCHLORIDE) (NOT SPECIFIED) [Suspect]
     Indication: DRUG USE FOR UNKNOWN INDICATION
     Dosage: 08 ML PER HOUR  [FROM 08:00 H. TO 22:00 H. DAILY] SUBCUTANEOUS
     Route: 058
     Dates: start: 20080901

REACTIONS (2)
  - CEREBRAL HAEMORRHAGE TRAUMATIC [None]
  - FALL [None]
